FAERS Safety Report 5171559-4 (Version None)
Quarter: 2006Q4

REPORT INFORMATION
  Report Type: 
  Country: None (occurrence: None)
  Receive Date: 20061213
  Receipt Date: 20060927
  Transmission Date: 20070319
  Serious: Yes (Life-Threatening, Hospitalization)
  Sender: FDA-Public Use
  Company Number: US-AMGEN-US194928

PATIENT
  Sex: Female
  Weight: 45.4 kg

DRUGS (2)
  1. ENBREL [Suspect]
     Indication: PSORIATIC ARTHROPATHY
     Route: 058
     Dates: start: 20000701, end: 20060501
  2. ENBREL [Suspect]
     Indication: PSORIASIS

REACTIONS (2)
  - BRONCHOPULMONARY ASPERGILLOSIS [None]
  - CLOSTRIDIUM DIFFICILE SEPSIS [None]
